FAERS Safety Report 5032918-3 (Version None)
Quarter: 2006Q2

REPORT INFORMATION
  Report Type: 
  Country: None (occurrence: None)
  Receive Date: 20060622
  Receipt Date: 20060614
  Transmission Date: 20061013
  Serious: Yes (Death, Hospitalization)
  Sender: FDA-Public Use
  Company Number: DE-SANOFI-SYNTHELABO-A04200600626

PATIENT
  Sex: Male

DRUGS (3)
  1. FLUOROURACIL [Suspect]
     Indication: NEOPLASM MALIGNANT
     Route: 041
     Dates: start: 20060101, end: 20060101
  2. ELOXATIN [Suspect]
     Indication: NEOPLASM MALIGNANT
     Route: 041
     Dates: start: 20060101, end: 20060101
  3. LEUCOVORIN CALCIUM [Suspect]
     Indication: NEOPLASM MALIGNANT
     Route: 041
     Dates: start: 20060101, end: 20060101

REACTIONS (2)
  - ABDOMINAL PAIN [None]
  - HAEMOLYTIC URAEMIC SYNDROME [None]
